FAERS Safety Report 4516634-X (Version None)
Quarter: 2004Q4

REPORT INFORMATION
  Report Type: 
  Country: None (occurrence: None)
  Receive Date: 20041202
  Receipt Date: 20041122
  Transmission Date: 20050328
  Serious: Yes (Life-Threatening, Hospitalization, Disabling)
  Sender: FDA-Public Use
  Company Number: US-MERCK-0411USA03574

PATIENT
  Age: 83 Year
  Sex: Male

DRUGS (6)
  1. VIOXX [Suspect]
     Indication: OSTEOARTHRITIS
     Route: 048
     Dates: start: 19790101, end: 20010101
  2. LANOXIN [Concomitant]
     Route: 065
  3. LIPITOR [Concomitant]
     Route: 065
  4. TOPROL-XL [Concomitant]
     Route: 065
  5. PLAVIX [Concomitant]
     Route: 065
  6. PROTONIX [Concomitant]
     Route: 065

REACTIONS (4)
  - ANEURYSM [None]
  - AORTIC ANEURYSM [None]
  - CEREBROVASCULAR ACCIDENT [None]
  - HAEMORRHAGE [None]
